FAERS Safety Report 13040091 (Version 1)
Quarter: 2016Q4

REPORT INFORMATION
  Report Type: Spontaneous
  Country: US (occurrence: US)
  Receive Date: 20161219
  Receipt Date: 20161219
  Transmission Date: 20170207
  Serious: Yes (Death, Life-Threatening, Hospitalization)
  Sender: FDA-Public Use
  Company Number: US-TARO PHARMACEUTICALS USA.,INC-2016SUN00513

PATIENT
  Age: 86 Day
  Sex: Male

DRUGS (1)
  1. ONDANSETRON HYDROCHLORIDE. [Suspect]
     Active Substance: ONDANSETRON HYDROCHLORIDE
     Indication: VOMITING
     Dosage: 0.5 MG, SINGLE
     Route: 048

REACTIONS (3)
  - Supraventricular tachycardia [Not Recovered/Not Resolved]
  - Cardiac arrest [Fatal]
  - Ventricular fibrillation [Fatal]
